FAERS Safety Report 7506453-4 (Version None)
Quarter: 2011Q2

REPORT INFORMATION
  Report Type: 
  Country: None (occurrence: None)
  Receive Date: 20110526
  Receipt Date: 20110516
  Transmission Date: 20111010
  Serious: Yes (Death)
  Sender: FDA-Public Use
  Company Number: JP-ACTELION-A-CH2011-47797

PATIENT
  Sex: Male
  Weight: 63 kg

DRUGS (13)
  1. PREDNISOLONE [Concomitant]
  2. TRACLEER [Suspect]
     Dosage: 93.75 MG, BID
     Route: 048
     Dates: start: 20060721, end: 20060727
  3. BERAPROST [Concomitant]
  4. TRACLEER [Suspect]
     Dosage: 125 MG, BID
     Route: 048
     Dates: start: 20060728, end: 20060810
  5. WARFARIN POTASSIUM [Concomitant]
  6. TRACLEER [Suspect]
     Indication: PULMONARY HYPERTENSION
     Dosage: 93.75 MG, BID
     Route: 048
     Dates: start: 20060811, end: 20070727
  7. TRACLEER [Suspect]
     Dosage: 62.5 MG, OD
     Route: 048
     Dates: start: 20060629, end: 20060629
  8. DIGOXIN [Concomitant]
  9. SPIRONOLACTONE [Concomitant]
  10. TRACLEER [Suspect]
     Dosage: 62.5 MG, OD
     Route: 048
     Dates: start: 20060622, end: 20060622
  11. CYCLOPHOSPHAMIDE [Concomitant]
  12. FUROSEMIDE [Concomitant]
  13. OXYGEN [Concomitant]

REACTIONS (3)
  - RESPIRATORY FAILURE [None]
  - INTERSTITIAL LUNG DISEASE [None]
  - PULMONARY ARTERIAL HYPERTENSION [None]
